FAERS Safety Report 6301548-5 (Version None)
Quarter: 2009Q3

REPORT INFORMATION
  Report Type: 
  Country: None (occurrence: None)
  Receive Date: 20090807
  Receipt Date: 20090728
  Transmission Date: 20100115
  Serious: Yes (Hospitalization)
  Sender: FDA-Public Use
  Company Number: FR-ELI_LILLY_AND_COMPANY-FR200905005825

PATIENT
  Sex: Female
  Weight: 43 kg

DRUGS (9)
  1. FORTEO [Suspect]
     Indication: OSTEOPOROSIS
     Dosage: 20 UG, DAILY (1/D)
     Route: 058
     Dates: start: 20080701, end: 20090625
  2. BETA BLOCKING AGENTS [Concomitant]
     Indication: CARDIAC FAILURE
     Dosage: UNK, UNKNOWN
     Route: 048
     Dates: start: 20060101
  3. ENZYME INHIBITORS [Concomitant]
     Indication: CARDIAC FAILURE
     Dosage: UNK, UNKNOWN
     Route: 048
     Dates: start: 20060101, end: 20090501
  4. CARDENSIEL [Concomitant]
     Dosage: UNK, UNKNOWN
     Route: 065
  5. FUROSEMIDE [Concomitant]
     Dosage: UNK, UNKNOWN
     Route: 065
  6. DIFFU K [Concomitant]
     Dosage: UNK, UNKNOWN
     Route: 065
  7. STILNOX [Concomitant]
     Dosage: UNK, UNKNOWN
     Route: 065
  8. OROCAL D(3) [Concomitant]
     Dosage: UNK, UNKNOWN
     Route: 065
  9. TIMOPTIC [Concomitant]
     Dosage: UNK, UNKNOWN
     Route: 065

REACTIONS (1)
  - PEMPHIGOID [None]
